FAERS Safety Report 10310399 (Version 1)
Quarter: 2014Q3

REPORT INFORMATION
  Report Type: Spontaneous
  Country: US (occurrence: None)
  Receive Date: 20140716
  Receipt Date: 20140716
  Transmission Date: 20150326
  Serious: No
  Sender: FDA-Public Use
  Company Number: None

PATIENT
  Age: 49 Year
  Sex: Female

DRUGS (5)
  1. ESZOPICLONE. [Suspect]
     Active Substance: ESZOPICLONE
     Indication: INSOMNIA
     Dosage: STRENGTH 3MG  1   BEDTIME  BY MOUTH
     Route: 048
     Dates: start: 20140711, end: 20140712
  2. VITAMIN D [Concomitant]
     Active Substance: CHOLECALCIFEROL
  3. JUICE PLUS FRUITS + VEGETABLES [Concomitant]
  4. LOSARTAN [Concomitant]
     Active Substance: LOSARTAN
  5. OMEGA 3 KRILL OIL [Concomitant]

REACTIONS (6)
  - Vomiting [None]
  - Influenza like illness [None]
  - Malaise [None]
  - Product substitution issue [None]
  - Feeling of body temperature change [None]
  - Posture abnormal [None]

NARRATIVE: CASE EVENT DATE: 20140711
